FAERS Safety Report 5240597-5 (Version None)
Quarter: 2007Q1

REPORT INFORMATION
  Report Type: 
  Country: None (occurrence: None)
  Receive Date: 20061208
  Receipt Date: 20050325
  Transmission Date: 20070707
  Serious: Yes (Other)
  Sender: FDA-Public Use
  Company Number: 2005UW04709

PATIENT
  Age: 83 Year
  Sex: Female
  Weight: 46.72 kg

DRUGS (5)
  1. CRESTOR [Suspect]
     Indication: BLOOD CHOLESTEROL INCREASED
     Dates: start: 20040101, end: 20040601
  2. ZETIA [Concomitant]
  3. INDERAL [Concomitant]
  4. MICARDIS [Concomitant]
  5. NORVASC [Concomitant]

REACTIONS (1)
  - POLLAKIURIA [None]
